FAERS Safety Report 4784347-5 (Version None)
Quarter: 2005Q3

REPORT INFORMATION
  Report Type: 
  Country: None (occurrence: None)
  Receive Date: 20050929
  Receipt Date: 20050929
  Transmission Date: 20060218
  Serious: Yes (Hospitalization)
  Sender: FDA-Public Use
  Company Number: None

PATIENT
  Age: 51 Year
  Sex: Male
  Weight: 85.5 kg

DRUGS (13)
  1. WARFARIN [Suspect]
     Indication: DEEP VEIN THROMBOSIS
     Dosage: VARIOUS, VARIOUS, ORAL
     Route: 048
  2. SILDENAFIL CITRATE [Concomitant]
  3. QUETIAPINE FUMARATE [Concomitant]
  4. RISPERIDONE [Concomitant]
  5. ACETAMINOPHEN [Concomitant]
  6. HYDROCODONE 5/ACETAMINOPHEN [Concomitant]
  7. ALBUTEROL SULFATE AND IPRATROPIUM BROMIDE [Concomitant]
  8. ARTIFICIAL TEARS POLYVINYL ALCOHOL [Concomitant]
  9. FOLIC ACID [Concomitant]
  10. OMEPRAZOLE [Concomitant]
  11. THIAMINE HCL [Concomitant]
  12. GUAIFENESIN 100MG/5ML (ALC-F/SF) [Concomitant]
  13. TEMAZEPAM [Concomitant]

REACTIONS (1)
  - INTERNATIONAL NORMALISED RATIO INCREASED [None]
